FAERS Safety Report 25733360 (Version 2)
Quarter: 2025Q3

REPORT INFORMATION
  Report Type: Spontaneous
  Country: US (occurrence: US)
  Receive Date: 20250828
  Receipt Date: 20250915
  Transmission Date: 20251020
  Serious: Yes (Death, Hospitalization)
  Sender: TEVA
  Company Number: US-TEVA-VS-3364509

PATIENT
  Age: 71 Year
  Sex: Female

DRUGS (8)
  1. HYDROCORTISONE [Suspect]
     Active Substance: HYDROCORTISONE
     Indication: Adrenal insufficiency
     Route: 065
  2. VANCOMYCIN [Concomitant]
     Active Substance: VANCOMYCIN
     Indication: Evidence based treatment
     Route: 065
  3. PYRAZINAMIDE [Suspect]
     Active Substance: PYRAZINAMIDE
     Indication: Peritoneal tuberculosis
     Route: 065
  4. ISONIAZID [Suspect]
     Active Substance: ISONIAZID
     Indication: Peritoneal tuberculosis
     Route: 065
  5. METRONIDAZOLE [Concomitant]
     Active Substance: METRONIDAZOLE
     Indication: Evidence based treatment
     Route: 065
  6. RIFAMPIN [Suspect]
     Active Substance: RIFAMPIN
     Indication: Peritoneal tuberculosis
     Route: 065
  7. ETHAMBUTOL [Suspect]
     Active Substance: ETHAMBUTOL HYDROCHLORIDE
     Indication: Peritoneal tuberculosis
     Route: 065
  8. CEFEPIME [Concomitant]
     Active Substance: CEFEPIME HYDROCHLORIDE
     Indication: Evidence based treatment
     Route: 065

REACTIONS (6)
  - Peritoneal tuberculosis [Fatal]
  - Tuberculosis [Fatal]
  - Drug ineffective [Fatal]
  - Multiple organ dysfunction syndrome [Fatal]
  - Sepsis [Fatal]
  - Gout [Unknown]
